FAERS Safety Report 6023770-8 (Version None)
Quarter: 2008Q4

REPORT INFORMATION
  Report Type: 
  Country: None (occurrence: None)
  Receive Date: 20081230
  Receipt Date: 20081219
  Transmission Date: 20090506
  Serious: Yes (Hospitalization)
  Sender: FDA-Public Use
  Company Number: NL-AMGEN-US295223

PATIENT
  Age: 54 Year
  Sex: Male
  Weight: 66 kg

DRUGS (9)
  1. ENBREL [Suspect]
     Indication: RHEUMATOID ARTHRITIS
     Route: 058
     Dates: start: 20050101, end: 20080620
  2. PREDNISONE [Suspect]
     Indication: RHEUMATOID ARTHRITIS
     Route: 065
     Dates: start: 19920101
  3. METHOTREXATE [Suspect]
     Indication: RHEUMATOID ARTHRITIS
     Route: 058
     Dates: start: 19920101, end: 19950101
  4. METHOTREXATE [Suspect]
     Route: 058
     Dates: start: 19970101
  5. OMEPRAZOLE [Concomitant]
  6. FOLIC ACID [Concomitant]
     Indication: RHEUMATOID ARTHRITIS
     Route: 065
  7. ACTONEL [Concomitant]
     Indication: OSTEOPOROSIS
     Route: 065
     Dates: start: 20020101
  8. CALCIUM WITH VITAMIN D [Concomitant]
     Route: 065
  9. NAPROXEN [Concomitant]
     Indication: RHEUMATOID ARTHRITIS
     Dosage: 2X 250 MG
     Route: 065

REACTIONS (5)
  - DEHYDRATION [None]
  - FUNGAL INFECTION [None]
  - GASTROENTERITIS ESCHERICHIA COLI [None]
  - GASTROENTERITIS SALMONELLA [None]
  - TRANSMISSION OF AN INFECTIOUS AGENT VIA A MEDICINAL PRODUCT [None]
